FAERS Safety Report 18193792 (Version 1)
Quarter: 2020Q3

REPORT INFORMATION
  Report Type: Spontaneous
  Country: CN (occurrence: CN)
  Receive Date: 20200825
  Receipt Date: 20200825
  Transmission Date: 20201103
  Serious: Yes (Life-Threatening)
  Sender: FDA-Public Use
  Company Number: CN-ASTRAZENECA-2020SF06487

PATIENT
  Age: 27394 Day
  Sex: Male
  Weight: 50 kg

DRUGS (4)
  1. SODIUM CHLORIDE. [Concomitant]
     Active Substance: SODIUM CHLORIDE
     Dates: start: 20200814, end: 20200814
  2. BRICANYL [Concomitant]
     Active Substance: TERBUTALINE SULFATE
     Indication: ASTHMA
     Route: 055
     Dates: start: 20200814, end: 20200814
  3. PULMICORT RESPULES [Suspect]
     Active Substance: BUDESONIDE
     Indication: COUGH
     Route: 055
     Dates: start: 20200814, end: 20200814
  4. BRICANYL [Concomitant]
     Active Substance: TERBUTALINE SULFATE
     Indication: COUGH
     Route: 055
     Dates: start: 20200814, end: 20200814

REACTIONS (6)
  - Oxygen saturation decreased [Recovering/Resolving]
  - Hyperhidrosis [Recovering/Resolving]
  - Sinus tachycardia [Unknown]
  - Asphyxia [Recovering/Resolving]
  - Blood pressure increased [Recovering/Resolving]
  - Rales [Recovering/Resolving]

NARRATIVE: CASE EVENT DATE: 20200814
